FAERS Safety Report 4972079-X (Version None)
Quarter: 2006Q2

REPORT INFORMATION
  Report Type: 
  Country: None (occurrence: None)
  Receive Date: 20060412
  Receipt Date: 20060412
  Transmission Date: 20061013
  Serious: Yes (Hospitalization, Other)
  Sender: FDA-Public Use
  Company Number: None

PATIENT
  Age: 35 Year
  Sex: Female
  Weight: 79.3795 kg

DRUGS (1)
  1. YASMIN [Suspect]
     Indication: ACNE
     Dosage: 1 PER DAY
     Dates: start: 20041201, end: 20050329

REACTIONS (2)
  - GALLBLADDER DISORDER [None]
  - SUPRAVENTRICULAR TACHYCARDIA [None]
